FAERS Safety Report 8083584-4 (Version None)
Quarter: 2012Q1

REPORT INFORMATION
  Report Type: 
  Country: None (occurrence: None)
  Receive Date: 20120127
  Receipt Date: 20110119
  Transmission Date: 20120608
  Serious: No
  Sender: FDA-Public Use
  Company Number: US-ABBOTT-11P-163-0698892-00

PATIENT
  Sex: Male
  Weight: 93.978 kg

DRUGS (4)
  1. METHOTREXATE [Concomitant]
     Indication: PSORIATIC ARTHROPATHY
     Route: 048
     Dates: end: 20090101
  2. HUMIRA [Suspect]
     Route: 058
     Dates: start: 20090101, end: 20101224
  3. HUMIRA [Suspect]
     Route: 058
     Dates: start: 20080101, end: 20090101
  4. HUMIRA [Suspect]
     Indication: PSORIATIC ARTHROPATHY
     Route: 058
     Dates: start: 20060101, end: 20080101

REACTIONS (3)
  - JOINT SWELLING [None]
  - RESPIRATORY TRACT CONGESTION [None]
  - HEADACHE [None]
